FAERS Safety Report 10280154 (Version 1)
Quarter: 2014Q3

REPORT INFORMATION
  Report Type: Spontaneous
  Country: US (occurrence: None)
  Receive Date: 20140702
  Receipt Date: 20140702
  Transmission Date: 20150326
  Serious: Yes (Hospitalization, Other)
  Sender: FDA-Public Use
  Company Number: DAV-AE-NAP-14-01

PATIENT
  Age: 27 Year
  Sex: Female

DRUGS (6)
  1. WARFARIN [Concomitant]
     Active Substance: WARFARIN
  2. NAPROXEN. [Suspect]
     Active Substance: NAPROXEN
     Indication: INTENTIONAL OVERDOSE
  3. IBUPROFEN. [Concomitant]
     Active Substance: IBUPROFEN
  4. NAPROXEN. [Suspect]
     Active Substance: NAPROXEN
     Indication: COMPLETED SUICIDE
  5. OXYCODONE/ACETAMINOPHEN [Concomitant]
     Active Substance: ACETAMINOPHEN\OXYCODONE\OXYCODONE HYDROCHLORIDE
  6. NORTRIPYLINE [Concomitant]

REACTIONS (10)
  - Tachycardia [None]
  - Intentional overdose [None]
  - Body temperature decreased [None]
  - Blood pressure increased [None]
  - Sedation [None]
  - Suicide attempt [None]
  - International normalised ratio increased [None]
  - Heart rate increased [None]
  - Gastrointestinal sounds abnormal [None]
  - Miosis [None]
